FAERS Safety Report 8539136-2 (Version None)
Quarter: 2012Q3

REPORT INFORMATION
  Report Type: 
  Country: None (occurrence: None)
  Receive Date: 20120726
  Receipt Date: 20120712
  Transmission Date: 20120928
  Serious: Yes (Congenital Anomaly)
  Sender: FDA-Public Use
  Company Number: DE-MYLANLABS-2012S1014596

PATIENT
  Sex: Male

DRUGS (2)
  1. MITOXANTRONE [Suspect]
     Indication: SECONDARY PROGRESSIVE MULTIPLE SCLEROSIS
     Dosage: FIRST DOSE IN AUGUST, SECOND DOSE 20
  2. ONDANSETRON [Concomitant]
     Indication: ANTIEMETIC SUPPORTIVE CARE

REACTIONS (2)
  - PIERRE ROBIN SYNDROME [None]
  - MATERNAL EXPOSURE BEFORE PREGNANCY [None]
